FAERS Safety Report 9006917 (Version 2)
Quarter: 2013Q2

REPORT INFORMATION
  Report Type: Report from Study
  Country: US (occurrence: US)
  Receive Date: 20130110
  Receipt Date: 20130520
  Transmission Date: 20140414
  Serious: Yes (Life-Threatening, Hospitalization, Other)
  Sender: FDA-Public Use
  Company Number: US-PURDUE-USA-2013-0097442

PATIENT
  Age: 71 Year
  Sex: Female
  Weight: 49.43 kg

DRUGS (1)
  1. OXYCONTIN (NDA 22-272) [Suspect]
     Indication: PAIN
     Dosage: 160 MG, BID
     Route: 048

REACTIONS (5)
  - Muscle atrophy [Unknown]
  - Sepsis [Recovered/Resolved]
  - Renal failure acute [Recovered/Resolved]
  - Pyelonephritis [Recovered/Resolved]
  - Acute respiratory failure [Recovered/Resolved]
